FAERS Safety Report 10210102 (Version 1)
Quarter: 2014Q2

REPORT INFORMATION
  Report Type: Spontaneous
  Country: US (occurrence: US)
  Receive Date: 20140602
  Receipt Date: 20140602
  Transmission Date: 20141212
  Serious: No
  Sender: FDA-Public Use
  Company Number: US-SHIRE-US201402573

PATIENT
  Age: 25 Year
  Sex: Female
  Weight: 72.56 kg

DRUGS (4)
  1. PENTASA [Suspect]
     Indication: CROHN^S DISEASE
     Dosage: 500 MG, 4X/DAY:QID
     Route: 048
     Dates: start: 201306
  2. CELEXA                             /00582602/ [Concomitant]
     Indication: ANXIETY
     Dosage: 40 MG, 1X/DAY:QD
     Route: 048
  3. CELEXA                             /00582602/ [Concomitant]
     Indication: DEPRESSION
  4. TRINESSA-28 [Concomitant]
     Indication: CONTRACEPTION
     Dosage: UNK, 1X/DAY:QD
     Route: 048

REACTIONS (2)
  - Off label use [Not Recovered/Not Resolved]
  - No adverse event [Not Recovered/Not Resolved]
